FAERS Safety Report 13280180 (Version 1)
Quarter: 2017Q1

REPORT INFORMATION
  Report Type: Report from Study
  Country: None (occurrence: US)
  Receive Date: 20170301
  Receipt Date: 20170301
  Transmission Date: 20170428
  Serious: No
  Sender: FDA-Public Use
  Company Number: US-AMAG PHARMACEUTICALS, INC.-AMAG201601590

PATIENT
  Sex: Female

DRUGS (1)
  1. MAKENA [Suspect]
     Active Substance: HYDROXYPROGESTERONE CAPROATE
     Indication: PREMATURE DELIVERY
     Dosage: UNK MG, UNK
     Route: 065
     Dates: start: 20160805

REACTIONS (4)
  - Depressed mood [Unknown]
  - Mood swings [Unknown]
  - Fluid retention [Unknown]
  - Fatigue [Unknown]
